FAERS Safety Report 16379747 (Version 1)
Quarter: 2019Q2

REPORT INFORMATION
  Report Type: Spontaneous
  Country: US (occurrence: US)
  Receive Date: 20190531
  Receipt Date: 20190531
  Transmission Date: 20190711
  Serious: No
  Sender: FDA-Public Use
  Company Number: US-TEVA-2019-US-1047051

PATIENT
  Sex: Female

DRUGS (2)
  1. MICONAZOLE. [Suspect]
     Active Substance: MICONAZOLE
     Route: 065
     Dates: start: 20190426, end: 20190429
  2. MICONAZOLE. [Suspect]
     Active Substance: MICONAZOLE
     Indication: FUNGAL INFECTION
     Route: 065
     Dates: start: 20190426, end: 20190429

REACTIONS (3)
  - Vulvovaginal burning sensation [Unknown]
  - Vulvovaginal erythema [Unknown]
  - Vulvovaginal discomfort [Unknown]

NARRATIVE: CASE EVENT DATE: 20190427
